FAERS Safety Report 25420950 (Version 1)
Quarter: 2025Q2

REPORT INFORMATION
  Report Type: Spontaneous
  Country: DE (occurrence: DE)
  Receive Date: 20250611
  Receipt Date: 20250611
  Transmission Date: 20250717
  Serious: Yes (Other)
  Sender: STALLERGENES
  Company Number: DE-STALCOR-2024-AER-02707

PATIENT
  Age: 5 Year
  Sex: Male

DRUGS (1)
  1. ORALAIR [Suspect]
     Active Substance: ANTHOXANTHUM ODORATUM POLLEN\DACTYLIS GLOMERATA POLLEN\LOLIUM PERENNE POLLEN\PHLEUM PRATENSE POLLEN\
     Indication: Seasonal allergy
     Route: 060
     Dates: start: 20241108, end: 20241109

REACTIONS (4)
  - Anaphylactic reaction [Recovered/Resolved]
  - Erythema [Recovered/Resolved]
  - Eye oedema [Recovered/Resolved]
  - Face oedema [Unknown]

NARRATIVE: CASE EVENT DATE: 20241109
